FAERS Safety Report 5291704-X (Version None)
Quarter: 2007Q2

REPORT INFORMATION
  Report Type: 
  Country: None (occurrence: None)
  Receive Date: 20070410
  Receipt Date: 20070328
  Transmission Date: 20071010
  Serious: Yes (Death, Life-Threatening)
  Sender: FDA-Public Use
  Company Number: JP-PFIZER INC-2007004201

PATIENT
  Age: 63 Year
  Sex: Female

DRUGS (5)
  1. JZOLOFT [Suspect]
     Dosage: DAILY DOSE:50MG
     Route: 048
     Dates: start: 20060929, end: 20061001
  2. SOLANAX [Suspect]
     Dosage: DAILY DOSE:.4MG
     Route: 048
     Dates: start: 20060929
  3. ROHYPNOL [Suspect]
     Dosage: DAILY DOSE:2MG
     Route: 048
  4. DOGMATYL [Concomitant]
     Dosage: DAILY DOSE:150MG
     Route: 048
  5. RIZE [Concomitant]
     Dosage: DAILY DOSE:10MG
     Route: 048
     Dates: start: 20060501

REACTIONS (1)
  - COMPLETED SUICIDE [None]
